FAERS Safety Report 12283116 (Version 2)
Quarter: 2016Q3

REPORT INFORMATION
  Report Type: Spontaneous
  Country: US (occurrence: US)
  Receive Date: 20160419
  Receipt Date: 20160912
  Transmission Date: 20161109
  Serious: No
  Sender: FDA-Public Use
  Company Number: US-ASTRAZENECA-2015SE45012

PATIENT
  Age: 25998 Day
  Sex: Female

DRUGS (9)
  1. GLUCOSAMINE / CHONDROITIN [Concomitant]
     Dosage: 750 MG/600MG TWICE DAILY STARTING IN 2000.
     Dates: start: 2000
  2. SELENIUM [Concomitant]
     Active Substance: SELENIUM
     Dosage: 200 MCG ONCE DAILY
     Dates: start: 2012
  3. LUTEIN [Concomitant]
     Active Substance: LUTEIN
     Dosage: ONCE DAILY IN 2015 (LUTEIN 6 MG)
     Dates: start: 2015
  4. SYNTHROID [Concomitant]
     Active Substance: LEVOTHYROXINE SODIUM
     Dosage: 0.1 MG ONCE A DAY IN 1980 AND ONCE OR TWICE A WEEK WILL TAKE 0.125 MG.
     Dates: start: 1980
  5. BYDUREON [Suspect]
     Active Substance: EXENATIDE
     Indication: TYPE 2 DIABETES MELLITUS
     Route: 058
  6. LIDOCAINE. [Concomitant]
     Active Substance: LIDOCAINE
  7. KLOR-CON [Concomitant]
     Active Substance: POTASSIUM CHLORIDE
     Dosage: 10 MEQ THREE TIMES A DAY STARTING IN THE 1980S.
     Dates: start: 1980
  8. ZEAXANTHIN [Concomitant]
     Active Substance: ZEAXANTHIN
     Dosage: 300 MG
  9. BILBERRY [Concomitant]
     Active Substance: BILBERRY
     Dosage: 60 MG,

REACTIONS (3)
  - Contusion [Not Recovered/Not Resolved]
  - Injection site pain [Not Recovered/Not Resolved]
  - Device defective [Unknown]

NARRATIVE: CASE EVENT DATE: 20150512
